FAERS Safety Report 7681188-6 (Version None)
Quarter: 2011Q3

REPORT INFORMATION
  Report Type: 
  Country: None (occurrence: None)
  Receive Date: 20110812
  Receipt Date: 20110801
  Transmission Date: 20111222
  Serious: Yes (Other)
  Sender: FDA-Public Use
  Company Number: CA-JNJFOC-20110601999

PATIENT
  Sex: Female
  Weight: 91 kg

DRUGS (9)
  1. GRAVOL TAB [Concomitant]
     Route: 048
  2. LITHIUM CARBONATE [Concomitant]
     Route: 065
  3. CYMBALTA [Concomitant]
     Route: 065
  4. ABILIFY [Concomitant]
     Route: 065
  5. REMICADE [Suspect]
     Route: 042
     Dates: start: 20101101, end: 20110604
  6. FLOVENT [Concomitant]
     Route: 065
  7. REMICADE [Suspect]
     Indication: CROHN'S DISEASE
     Route: 042
     Dates: start: 20100829
  8. SEROQUEL [Concomitant]
     Route: 065
  9. IMURAN [Concomitant]
     Route: 065

REACTIONS (1)
  - ARTHRITIS [None]
